FAERS Safety Report 10876440 (Version 2)
Quarter: 2015Q2

REPORT INFORMATION
  Report Type: Spontaneous
  Country: US (occurrence: US)
  Receive Date: 20150228
  Receipt Date: 20150406
  Transmission Date: 20150821
  Serious: Yes (Hospitalization, Other)
  Sender: FDA-Public Use
  Company Number: PHEH2015US003982

PATIENT
  Age: 55 Year
  Sex: Female
  Weight: 68.93 kg

DRUGS (2)
  1. GILENYA [Suspect]
     Active Substance: FINGOLIMOD HYDROCHLORIDE
     Indication: MULTIPLE SCLEROSIS
     Dosage: DAILY (QD)
     Route: 048
     Dates: start: 201103, end: 20150226
  2. BACLOFEN. [Concomitant]
     Active Substance: BACLOFEN
     Indication: PRODUCT USED FOR UNKNOWN INDICATION
     Dosage: UNK UNK, PRN
     Route: 048

REACTIONS (12)
  - Anaemia [Unknown]
  - Adenocarcinoma of the cervix [Not Recovered/Not Resolved]
  - Vomiting [Unknown]
  - Back pain [Unknown]
  - Malaise [Unknown]
  - Lymphopenia [Unknown]
  - Nausea [Unknown]
  - Urinary tract infection [Unknown]
  - Flank pain [Unknown]
  - Urinary tract obstruction [Unknown]
  - Hydronephrosis [Unknown]
  - Lymphocyte count decreased [Unknown]

NARRATIVE: CASE EVENT DATE: 201412
